FAERS Safety Report 18686977 (Version 1)
Quarter: 2020Q4

REPORT INFORMATION
  Report Type: Spontaneous
  Country: US (occurrence: US)
  Receive Date: 20201231
  Receipt Date: 20201231
  Transmission Date: 20210114
  Serious: No
  Sender: FDA-Public Use
  Company Number: US-009507513-2012USA007705

PATIENT
  Age: 16 Year
  Sex: Female
  Weight: 59.86 kg

DRUGS (3)
  1. NEXPLANON [Suspect]
     Active Substance: ETONOGESTREL
     Indication: CONTRACEPTION
     Dosage: 1 DOSAGE FORM
     Route: 023
     Dates: start: 20191111, end: 20201029
  2. NEXPLANON [Suspect]
     Active Substance: ETONOGESTREL
     Indication: CONTRACEPTION
     Dosage: 1 DOSAGE FORM, LEFT UPPER ARM, 1 INSERTION EVERY 3 YEARS
     Route: 023
     Dates: start: 20191111, end: 20201215
  3. KYLEENA [Suspect]
     Active Substance: LEVONORGESTREL
     Dosage: UNK
     Dates: start: 20201112

REACTIONS (4)
  - Overdose [Unknown]
  - Incorrect route of product administration [Unknown]
  - Vaginal haemorrhage [Not Recovered/Not Resolved]
  - Device use error [Unknown]

NARRATIVE: CASE EVENT DATE: 20191111
